FAERS Safety Report 11403433 (Version 1)
Quarter: 2015Q3

REPORT INFORMATION
  Report Type: Spontaneous
  Country: US (occurrence: None)
  Receive Date: 20150820
  Receipt Date: 20150820
  Transmission Date: 20151125
  Serious: Yes (Hospitalization)
  Sender: FDA-Public Use
  Company Number: None

PATIENT
  Age: 36 Year
  Sex: Female
  Weight: 58.51 kg

DRUGS (2)
  1. METRONIDAZOLE 500MG [Suspect]
     Active Substance: METRONIDAZOLE
     Indication: SMALL INTESTINAL BACTERIAL OVERGROWTH
     Dosage: 1 TABLET, TWICE DAILY, TAKEN BY MOUTH
     Route: 048
     Dates: start: 20150804, end: 20150806
  2. MULTIVITAMIN [Concomitant]
     Active Substance: VITAMINS

REACTIONS (9)
  - Hypoaesthesia [None]
  - Paraesthesia [None]
  - Dizziness [None]
  - Confusional state [None]
  - Asthenia [None]
  - Fatigue [None]
  - Paraesthesia oral [None]
  - Pain in jaw [None]
  - Back pain [None]

NARRATIVE: CASE EVENT DATE: 20150807
